FAERS Safety Report 9416122 (Version 1)
Quarter: 2013Q3

REPORT INFORMATION
  Report Type: Spontaneous
  Country: CA (occurrence: CA)
  Receive Date: 20130724
  Receipt Date: 20130724
  Transmission Date: 20140515
  Serious: Yes (Death, Other)
  Sender: FDA-Public Use
  Company Number: CA-ROCHE-1250626

PATIENT
  Age: 55 Year
  Sex: Male

DRUGS (5)
  1. MYCOPHENOLATE MOFETIL [Suspect]
     Indication: PRODUCT USED FOR UNKNOWN INDICATION
     Route: 065
  2. CYCLOSPORINE [Suspect]
     Indication: PRODUCT USED FOR UNKNOWN INDICATION
     Route: 065
  3. PREDNISONE [Suspect]
     Indication: PRODUCT USED FOR UNKNOWN INDICATION
     Route: 065
  4. PREDNISONE [Suspect]
     Route: 065
  5. SULFAMETHOXAZOLE/TRIMETHOPRIM [Concomitant]

REACTIONS (7)
  - Atelectasis [Fatal]
  - Bronchitis [Fatal]
  - Necrotising bronchiolitis [Fatal]
  - Pseudomonas infection [Fatal]
  - Sepsis [Fatal]
  - Staphylococcal infection [Fatal]
  - Tracheobronchitis [Fatal]
